FAERS Safety Report 4910865-2 (Version None)
Quarter: 2006Q1

REPORT INFORMATION
  Report Type: 
  Country: None (occurrence: None)
  Receive Date: 20060208
  Receipt Date: 20060208
  Transmission Date: 20060701
  Serious: Yes (Hospitalization)
  Sender: FDA-Public Use
  Company Number: None

PATIENT
  Sex: Male
  Weight: 60.3284 kg

DRUGS (8)
  1. NPH INSULIN [Suspect]
     Indication: DIABETES MELLITUS
     Dosage: 15 UNITS BID
     Dates: start: 20051003, end: 20051026
  2. AMIODARONE HCL [Concomitant]
  3. ASPIRIN 25MG/DIPHYRIDAMOLE [Concomitant]
  4. CREON [Concomitant]
  5. DILTIAZEM HCL [Concomitant]
  6. ENALAPRIL MALEATE [Concomitant]
  7. HUMULIN N [Concomitant]
  8. INSULIN SYRINGE [Concomitant]

REACTIONS (2)
  - HYPOGLYCAEMIA [None]
  - LOSS OF CONSCIOUSNESS [None]
